FAERS Safety Report 9924071 (Version 1)
Quarter: 2014Q1

REPORT INFORMATION
  Report Type: Report from Study
  Country: US (occurrence: US)
  Receive Date: 20140225
  Receipt Date: 20140225
  Transmission Date: 20141002
  Serious: Yes (Other)
  Sender: FDA-Public Use
  Company Number: US-ROCHE-1339553

PATIENT
  Sex: Female

DRUGS (5)
  1. LUCENTIS [Suspect]
     Indication: AGE-RELATED MACULAR DEGENERATION
     Route: 050
  2. AVASTIN [Suspect]
     Indication: PRODUCT USED FOR UNKNOWN INDICATION
     Route: 065
  3. OCUFLOX [Concomitant]
  4. AKTEN [Concomitant]
  5. SYSTANE [Concomitant]

REACTIONS (9)
  - Eye pruritus [Unknown]
  - Retinal oedema [Unknown]
  - Oscillopsia [Unknown]
  - Frustration [Unknown]
  - Vitreous floaters [Unknown]
  - Metamorphopsia [Unknown]
  - Detachment of retinal pigment epithelium [Unknown]
  - Vitreous detachment [Unknown]
  - Off label use [Unknown]
